FAERS Safety Report 15984441 (Version 1)
Quarter: 2019Q1

REPORT INFORMATION
  Report Type: Spontaneous
  Country: FR (occurrence: FR)
  Receive Date: 20190220
  Receipt Date: 20190220
  Transmission Date: 20190418
  Serious: Yes (Other)
  Sender: FDA-Public Use
  Company Number: FR-SUN PHARMACEUTICAL INDUSTRIES LTD-2019RR-199660

PATIENT
  Age: 30 Year
  Sex: Male

DRUGS (2)
  1. PARACETAMOL [Suspect]
     Active Substance: ACETAMINOPHEN
     Indication: PYREXIA
     Dosage: CODEINE ; IN TOTAL
     Route: 048
     Dates: start: 20190114, end: 20190114
  2. CODEINE [Suspect]
     Active Substance: CODEINE
     Indication: PYREXIA
     Dosage: CODEINE ; IN TOTAL
     Route: 048
     Dates: start: 20190114, end: 20190114

REACTIONS (2)
  - Dermatitis bullous [Not Recovered/Not Resolved]
  - Purpura [Not Recovered/Not Resolved]

NARRATIVE: CASE EVENT DATE: 20190114
